FAERS Safety Report 11398552 (Version 1)
Quarter: 2015Q3

REPORT INFORMATION
  Report Type: Spontaneous
  Country: NO (occurrence: None)
  Receive Date: 20150818
  Receipt Date: 20150818
  Transmission Date: 20151125
  Serious: Yes (Hospitalization, Other)
  Sender: FDA-Public Use
  Company Number: ABR_02330_2015

PATIENT
  Age: 47 Year
  Sex: Male

DRUGS (1)
  1. LAMOTRIGINE (LAMOTRIGINE) [Suspect]
     Active Substance: LAMOTRIGINE
     Indication: EPILEPSY
     Dosage: DF
     Dates: start: 2006

REACTIONS (4)
  - Upper respiratory tract infection [None]
  - Bone density decreased [None]
  - Femoral neck fracture [None]
  - Seizure [None]

NARRATIVE: CASE EVENT DATE: 201302
